FAERS Safety Report 6231748-4 (Version None)
Quarter: 2009Q2

REPORT INFORMATION
  Report Type: 
  Country: None (occurrence: None)
  Receive Date: 20090612
  Receipt Date: 20090612
  Transmission Date: 20091009
  Serious: Yes (Other)
  Sender: FDA-Public Use
  Company Number: None

PATIENT
  Age: 81 Year
  Sex: Female
  Weight: 66.2252 kg

DRUGS (2)
  1. ALLOPURINOL 100MG TAB [Suspect]
     Indication: ARTHRITIS
     Dosage: 1 TABLET 2 TIMES DAILY PO
     Route: 048
     Dates: start: 20050101
  2. ALLOPURINOL 100MG TAB [Suspect]
     Indication: CHONDROCALCINOSIS PYROPHOSPHATE
     Dosage: 1 TABLET 2 TIMES DAILY PO
     Route: 048
     Dates: start: 20050101

REACTIONS (7)
  - DERMATITIS [None]
  - DISCOMFORT [None]
  - INSOMNIA [None]
  - SCAB [None]
  - SKIN LESION [None]
  - THERAPEUTIC RESPONSE DECREASED [None]
  - URTICARIA [None]
